FAERS Safety Report 7339944-X (Version None)
Quarter: 2011Q1

REPORT INFORMATION
  Report Type: 
  Country: None (occurrence: None)
  Receive Date: 20110309
  Receipt Date: 20110301
  Transmission Date: 20110831
  Serious: Yes (Hospitalization, Disabling)
  Sender: FDA-Public Use
  Company Number: US-US-EMD SERONO, INC.-7045331

PATIENT
  Sex: Female
  Weight: 113 kg

DRUGS (4)
  1. ADVIL [Concomitant]
     Indication: PAIN
     Dates: end: 20100101
  2. REBIF [Suspect]
     Indication: MULTIPLE SCLEROSIS
     Route: 058
     Dates: start: 20060821
  3. NEURONTIN [Concomitant]
     Indication: PAIN
  4. BACLOFEN [Concomitant]
     Indication: MUSCLE SPASMS

REACTIONS (4)
  - THROMBOSIS [None]
  - BEDRIDDEN [None]
  - CYSTITIS [None]
  - INTESTINAL OBSTRUCTION [None]
